FAERS Safety Report 22650194 (Version 1)
Quarter: 2023Q2

REPORT INFORMATION
  Report Type: Report from Study
  Country: US (occurrence: None)
  Receive Date: 20230628
  Receipt Date: 20230628
  Transmission Date: 20230722
  Serious: Yes (Death)
  Sender: FDA-Public Use
  Company Number: 2023A147187

PATIENT
  Age: 23094 Day
  Sex: Male

DRUGS (3)
  1. FARXIGA [Suspect]
     Active Substance: DAPAGLIFLOZIN PROPANEDIOL
     Route: 048
  2. BREZTRI [Suspect]
     Active Substance: BUDESONIDE\FORMOTEROL\GLYCOPYRROLATE
     Route: 055
  3. BYDUREON BCISE [Suspect]
     Active Substance: EXENATIDE

REACTIONS (1)
  - Death [Fatal]

NARRATIVE: CASE EVENT DATE: 20230410
